FAERS Safety Report 4391671-7 (Version None)
Quarter: 2004Q3

REPORT INFORMATION
  Report Type: 
  Country: None (occurrence: None)
  Receive Date: 20040702
  Receipt Date: 20040427
  Transmission Date: 20050211
  Serious: Yes (Other)
  Sender: FDA-Public Use
  Company Number: 2004UW08510

PATIENT
  Age: 73 Year
  Sex: Female
  Weight: 74.3899 kg

DRUGS (8)
  1. CRESTOR [Suspect]
     Indication: BLOOD CHOLESTEROL INCREASED
     Dosage: 10 MG PO
     Route: 048
     Dates: start: 20040101
  2. CRESTOR [Suspect]
     Indication: BLOOD CHOLESTEROL INCREASED
     Dosage: 5 MG PO
     Route: 048
  3. CALCIUM [Concomitant]
  4. MULTI-VITAMIN [Concomitant]
  5. LISINOPRIL [Concomitant]
  6. PLENDIL [Concomitant]
  7. SYNTHROID [Concomitant]
  8. ACIPHEX [Concomitant]

REACTIONS (1)
  - GASTROOESOPHAGEAL REFLUX DISEASE [None]
